FAERS Safety Report 23133027 (Version 1)
Quarter: 2023Q4

REPORT INFORMATION
  Report Type: Spontaneous
  Country: CN (occurrence: CN)
  Receive Date: 20231101
  Receipt Date: 20231101
  Transmission Date: 20240110
  Serious: Yes (Other)
  Sender: FDA-Public Use
  Company Number: CN-ASTELLAS-2023US032250

PATIENT
  Age: 70 Year
  Sex: Male
  Weight: 64 kg

DRUGS (4)
  1. HARNAL [Suspect]
     Active Substance: TAMSULOSIN HYDROCHLORIDE
     Indication: Dysuria
     Dosage: 1 DF, QD
     Route: 048
     Dates: start: 20230917, end: 20230917
  2. HARNAL [Suspect]
     Active Substance: TAMSULOSIN HYDROCHLORIDE
     Dosage: 1 DF, QD
     Route: 048
     Dates: start: 20230918, end: 20230918
  3. FINASTERIDE [Suspect]
     Active Substance: FINASTERIDE
     Indication: Dysuria
     Dosage: 1 DF, QD
     Route: 048
     Dates: start: 20230917, end: 20230917
  4. FINASTERIDE [Suspect]
     Active Substance: FINASTERIDE
     Dosage: 1 DF, QD
     Route: 048
     Dates: start: 20230918, end: 20230918

REACTIONS (5)
  - Altered state of consciousness [Recovering/Resolving]
  - Indifference [Recovering/Resolving]
  - Tremor [Recovering/Resolving]
  - Night sweats [Recovering/Resolving]
  - Muscular weakness [Recovering/Resolving]

NARRATIVE: CASE EVENT DATE: 20230918
